FAERS Safety Report 6402298-7 (Version None)
Quarter: 2009Q4

REPORT INFORMATION
  Report Type: 
  Country: None (occurrence: None)
  Receive Date: 20091015
  Receipt Date: 20091009
  Transmission Date: 20100525
  Serious: Yes (Hospitalization, Other)
  Sender: FDA-Public Use
  Company Number: PHHO2009JP09940

PATIENT
  Sex: Male
  Weight: 48 kg

DRUGS (9)
  1. BLINDED NO TREATMENT RECEIVED NOMED [Suspect]
     Indication: PANCREATIC NEUROENDOCRINE TUMOUR
     Dosage: DOUBLE BLIND
     Route: 048
     Dates: start: 20090403, end: 20090603
  2. BLINDED PLACEBO COMP-PLA+ [Suspect]
     Indication: PANCREATIC NEUROENDOCRINE TUMOUR
     Dosage: DOUBLE BLIND
     Route: 048
     Dates: start: 20090403, end: 20090603
  3. BLINDED RAD 666 RAD+TAB+CMAS [Suspect]
     Indication: PANCREATIC NEUROENDOCRINE TUMOUR
     Dosage: DOUBLE BLIND
     Route: 048
     Dates: start: 20090403, end: 20090603
  4. RAD 666 / RAD 001A [Suspect]
     Indication: PANCREATIC NEUROENDOCRINE TUMOUR
     Dosage: 10 MG
     Route: 048
     Dates: start: 20090704, end: 20090717
  5. RAD 666 / RAD 001A [Suspect]
     Dosage: 5 MG, QD
     Route: 048
     Dates: start: 20090724, end: 20090804
  6. RAD 666 / RAD 001A [Suspect]
     Dosage: 5 MG / DAY
     Route: 048
     Dates: start: 20090825, end: 20090923
  7. BASEN [Concomitant]
     Indication: DIABETES MELLITUS
  8. AMARYL [Concomitant]
     Indication: DIABETES MELLITUS
     Dosage: UNK
  9. TAKEPRON [Concomitant]
     Indication: DUODENAL ULCER
     Dosage: UNK

REACTIONS (15)
  - ASTHENIA [None]
  - C-REACTIVE PROTEIN INCREASED [None]
  - DECREASED APPETITE [None]
  - DEPRESSED LEVEL OF CONSCIOUSNESS [None]
  - DIARRHOEA [None]
  - HEPATIC ENCEPHALOPATHY [None]
  - HEPATIC ENZYME INCREASED [None]
  - HEPATIC FAILURE [None]
  - MALIGNANT NEOPLASM PROGRESSION [None]
  - NAUSEA [None]
  - PLATELET COUNT DECREASED [None]
  - PNEUMONIA BACTERIAL [None]
  - PYREXIA [None]
  - STOMATITIS [None]
  - WHITE BLOOD CELL COUNT INCREASED [None]
